FAERS Safety Report 17941140 (Version 3)
Quarter: 2020Q4

REPORT INFORMATION
  Report Type: Report from Study
  Country: US (occurrence: US)
  Receive Date: 20200624
  Receipt Date: 20201113
  Transmission Date: 20210113
  Serious: No
  Sender: FDA-Public Use
  Company Number: US-AGIOS-2006US01980

PATIENT

DRUGS (1)
  1. TIBSOVO [Suspect]
     Active Substance: IVOSIDENIB
     Indication: MYELOID LEUKAEMIA
     Dosage: 250 MILLIGRAM, TWO TABLETS (500MG), QD
     Route: 048
     Dates: start: 20190522

REACTIONS (8)
  - Crystalluria [Unknown]
  - Product dose omission issue [Unknown]
  - Abdominal discomfort [Unknown]
  - Nausea [Unknown]
  - Off label use [Not Recovered/Not Resolved]
  - Memory impairment [Unknown]
  - Blood thyroid stimulating hormone increased [Unknown]
  - Cough [Unknown]

NARRATIVE: CASE EVENT DATE: 202005
